FAERS Safety Report 10234803 (Version 1)
Quarter: 2014Q1

REPORT INFORMATION
  Report Type: Spontaneous
  Country: US (occurrence: None)
  Receive Date: 20140306
  Receipt Date: 20140306
  Transmission Date: 20141002
  Serious: Yes (Disabling)
  Sender: FDA-Public Use
  Company Number: 163-21880-13050542

PATIENT
  Age: 50 Year
  Sex: Male
  Weight: 62.14 kg

DRUGS (12)
  1. REVLIMID (LENALIDOMIDE) (25 MILLIGRAM, CAPSULES) [Suspect]
     Indication: PLASMA CELL MYELOMA
     Route: 048
     Dates: start: 200902
  2. DEXAMETHASONE (TABLETS) [Concomitant]
  3. ENOXAPARIN (UNKNOWN) [Concomitant]
  4. FUROSEMIDE (UNKNOWN) [Concomitant]
  5. LANSOPRAZOLE (UNKNOWN) [Concomitant]
  6. MORPHINE (UNKNOWN) [Concomitant]
  7. MORPHINE SULFATE CR (MORPHINE SULFATE) (UNKNOWN) [Concomitant]
  8. POTASSIUM CHLORIDE (UNKNOWN) [Concomitant]
  9. WARFARIN (UNKNOWN) [Concomitant]
  10. ZOLEDRONIC ACID (UNKNOWN) [Concomitant]
  11. COUMADIN (WARFARIN SODIUM) (TABLETS) [Concomitant]
  12. KLOR-CON (POTASSIUM CHLORIDE) (UNKNOWN) [Concomitant]

REACTIONS (1)
  - Plasma cell myeloma [None]
